FAERS Safety Report 4709184-9 (Version None)
Quarter: 2005Q3

REPORT INFORMATION
  Report Type: 
  Country: None (occurrence: None)
  Receive Date: 20050705
  Receipt Date: 20050623
  Transmission Date: 20060218
  Serious: Yes (Hospitalization)
  Sender: FDA-Public Use
  Company Number: 215597

PATIENT
  Age: 10 Year
  Sex: Male
  Weight: 16.1 kg

DRUGS (7)
  1. NUTROPIN AQ (SOMATROPIN) SOLUTION OF INJECTION, 10MG [Suspect]
     Indication: CONGENITAL NEPHROTIC SYNDROME
     Dosage: 1.8 MG, QD, SUBCUTANEOUS
     Route: 058
     Dates: start: 20040127, end: 20050405
  2. CALCIUM CARBONATE [Concomitant]
  3. ERYTHROPOIETIN (EPOETIN NOS) [Concomitant]
  4. ORAL IRON PREPARATION (IRON NOS) [Concomitant]
  5. PREDNISONE [Concomitant]
  6. ZINC (ZINC NOS) [Concomitant]
  7. IMMUNOSUPPRESSANTS [Concomitant]

REACTIONS (3)
  - LYMPHOPROLIFERATIVE DISORDER [None]
  - POST PROCEDURAL COMPLICATION [None]
  - THERAPY NON-RESPONDER [None]
